FAERS Safety Report 6612148-1 (Version None)
Quarter: 2010Q1

REPORT INFORMATION
  Report Type: 
  Country: None (occurrence: None)
  Receive Date: 20100302
  Receipt Date: 20100302
  Transmission Date: 20100710
  Serious: No
  Sender: FDA-Public Use
  Company Number: None

PATIENT
  Age: 61 Year
  Weight: 97.5234 kg

DRUGS (2)
  1. LEXAPRO [Suspect]
     Indication: MYALGIA
     Dosage: 10 MG ONCE DAILY PO
     Route: 048
     Dates: start: 20090810, end: 20100301
  2. LEXAPRO [Suspect]
     Indication: RHABDOMYOLYSIS
     Dosage: 10 MG ONCE DAILY PO
     Route: 048
     Dates: start: 20090810, end: 20100301

REACTIONS (3)
  - ABNORMAL BEHAVIOUR [None]
  - ALCOHOLISM [None]
  - LOSS OF CONSCIOUSNESS [None]
